FAERS Safety Report 5378246-8 (Version None)
Quarter: 2007Q3

REPORT INFORMATION
  Report Type: 
  Country: None (occurrence: None)
  Receive Date: 20070702
  Receipt Date: 20070625
  Transmission Date: 20080115
  Serious: Yes (Death, Hospitalization)
  Sender: FDA-Public Use
  Company Number: 163-21880-07021046

PATIENT
  Age: 60 Year
  Sex: Male
  Weight: 86.1834 kg

DRUGS (4)
  1. REVLIMID [Suspect]
     Indication: AMYLOIDOSIS
     Dosage: 15 MG, QD FOR 3 WEEKS, OFF FOR 1 WEEK, ORAL
     Route: 048
     Dates: start: 20061226, end: 20070201
  2. REVLIMID [Suspect]
     Indication: MULTIPLE MYELOMA
     Dosage: 15 MG, QD FOR 3 WEEKS, OFF FOR 1 WEEK, ORAL
     Route: 048
     Dates: start: 20061226, end: 20070201
  3. ASPIRIN [Concomitant]
  4. LASIX [Concomitant]

REACTIONS (8)
  - CARDIAC FAILURE [None]
  - COLLAPSE OF LUNG [None]
  - DISEASE RECURRENCE [None]
  - DRUG INEFFECTIVE [None]
  - FALL [None]
  - ORTHOSTATIC HYPOTENSION [None]
  - PULMONARY EMBOLISM [None]
  - VENTRICULAR TACHYCARDIA [None]
